FAERS Safety Report 20842729 (Version 7)
Quarter: 2022Q4

REPORT INFORMATION
  Report Type: Report from Study
  Country: CA (occurrence: CA)
  Receive Date: 20220518
  Receipt Date: 20221025
  Transmission Date: 20230112
  Serious: Yes (Hospitalization, Other)
  Sender: FDA-Public Use
  Company Number: CA-HLS-202200997

PATIENT
  Age: 44 Year
  Sex: Female

DRUGS (4)
  1. CLOZARIL [Suspect]
     Active Substance: CLOZAPINE
     Indication: Schizoaffective disorder
     Dosage: AT BEDTIME
     Route: 048
     Dates: start: 20220127
  2. CLOZARIL [Suspect]
     Active Substance: CLOZAPINE
     Indication: Schizoaffective disorder
     Route: 048
     Dates: start: 20130910
  3. FERROUS FUMARATE [Concomitant]
     Active Substance: FERROUS FUMARATE
     Indication: Product used for unknown indication
     Route: 048
  4. Atropine drops [Concomitant]
     Indication: Product used for unknown indication
     Route: 065

REACTIONS (20)
  - Neutropenia [Not Recovered/Not Resolved]
  - Red blood cell count decreased [Unknown]
  - Sedation complication [Unknown]
  - Fatigue [Unknown]
  - Haemoglobin decreased [Unknown]
  - Hallucination, auditory [Unknown]
  - Lymphocyte count decreased [Unknown]
  - Lymphoproliferative disorder [Unknown]
  - Mean cell volume decreased [Unknown]
  - Pallor [Unknown]
  - Pancytopenia [Unknown]
  - Platelet count decreased [Unknown]
  - Fear [Unknown]
  - Neutropenia [Unknown]
  - Ascites [Unknown]
  - Lymphoma [Unknown]
  - Leukopenia [Unknown]
  - Leukopenia [Unknown]
  - Weight increased [Unknown]
  - Weight decreased [Unknown]

NARRATIVE: CASE EVENT DATE: 20220511
